FAERS Safety Report 11436006 (Version 1)
Quarter: 2015Q3

REPORT INFORMATION
  Report Type: Spontaneous
  Country: US (occurrence: US)
  Receive Date: 20150831
  Receipt Date: 20150831
  Transmission Date: 20151125
  Serious: Yes (Life-Threatening, Hospitalization)
  Sender: FDA-Public Use
  Company Number: US-BAYER-2015-404775

PATIENT
  Age: 23 Year
  Sex: Female

DRUGS (22)
  1. FENTANYL. [Concomitant]
     Active Substance: FENTANYL
  2. PANTOPRAZOLE [Concomitant]
     Active Substance: PANTOPRAZOLE SODIUM
  3. BEYAZ [Suspect]
     Active Substance: DROSPIRENONE\ETHINYL ESTRADIOL\LEVOMEFOLATE CALCIUM
     Dosage: UNK
  4. BETAMETHASONE. [Concomitant]
     Active Substance: BETAMETHASONE
  5. BEYAZ [Suspect]
     Active Substance: DROSPIRENONE\ETHINYL ESTRADIOL\LEVOMEFOLATE CALCIUM
     Dosage: UNK
  6. BEYAZ [Suspect]
     Active Substance: DROSPIRENONE\ETHINYL ESTRADIOL\LEVOMEFOLATE CALCIUM
     Dosage: UNK
  7. DULOXETINE. [Concomitant]
     Active Substance: DULOXETINE
  8. OXYCODONE [Concomitant]
     Active Substance: OXYCODONE
  9. EPINEPHRINE. [Concomitant]
     Active Substance: EPINEPHRINE
  10. LEXAPRO [Concomitant]
     Active Substance: ESCITALOPRAM OXALATE
     Indication: DEPRESSION
  11. DAPSONE. [Concomitant]
     Active Substance: DAPSONE
     Indication: ACNE
  12. YAZ [Suspect]
     Active Substance: DROSPIRENONE\ETHINYL ESTRADIOL
  13. ATIVAN [Concomitant]
     Active Substance: LORAZEPAM
     Indication: SEIZURE
  14. PREDNISONE. [Concomitant]
     Active Substance: PREDNISONE
  15. KEPPRA [Concomitant]
     Active Substance: LEVETIRACETAM
  16. GABAPENTIN. [Concomitant]
     Active Substance: GABAPENTIN
  17. TIZANIDINE. [Concomitant]
     Active Substance: TIZANIDINE
  18. TOPAMAX [Concomitant]
     Active Substance: TOPIRAMATE
     Indication: MYOCLONUS
  19. NEURONTIN [Concomitant]
     Active Substance: GABAPENTIN
  20. LORAZEPAM. [Concomitant]
     Active Substance: LORAZEPAM
  21. ATROPINE. [Concomitant]
     Active Substance: ATROPINE
  22. VASOPRESSIN. [Concomitant]
     Active Substance: VASOPRESSIN
     Dosage: 40 UNITS

REACTIONS (3)
  - Deep vein thrombosis [None]
  - Brain injury [None]
  - Pulmonary embolism [None]

NARRATIVE: CASE EVENT DATE: 201210
